FAERS Safety Report 10688578 (Version 3)
Quarter: 2015Q1

REPORT INFORMATION
  Report Type: Spontaneous
  Country: US (occurrence: US)
  Receive Date: 20150102
  Receipt Date: 20150121
  Transmission Date: 20150720
  Serious: Yes (Death, Hospitalization)
  Sender: FDA-Public Use
  Company Number: US-ACTELION-A-US2014-108056

PATIENT
  Age: 86 Year
  Sex: Female

DRUGS (6)
  1. ADCIRCA [Concomitant]
     Active Substance: TADALAFIL
  2. TREPROSTINIL [Concomitant]
     Active Substance: TREPROSTINIL
  3. ASPIRIN. [Concomitant]
     Active Substance: ASPIRIN
  4. FUROSEMIDE. [Concomitant]
     Active Substance: FUROSEMIDE
  5. TRACLEER [Suspect]
     Active Substance: BOSENTAN\BOSENTAN MONOHYDRATE
     Indication: PULMONARY ARTERIAL HYPERTENSION
     Dosage: UNK
     Route: 048
     Dates: end: 20141226
  6. POTASSIUM [Concomitant]
     Active Substance: POTASSIUM

REACTIONS (7)
  - Death [Fatal]
  - Oedema peripheral [Unknown]
  - General physical health deterioration [Unknown]
  - Malaise [Unknown]
  - Fluid retention [Unknown]
  - Faecal incontinence [Unknown]
  - Gait disturbance [Unknown]

NARRATIVE: CASE EVENT DATE: 20141201
